FAERS Safety Report 8259170-X (Version None)
Quarter: 2012Q2

REPORT INFORMATION
  Report Type: 
  Country: None (occurrence: None)
  Receive Date: 20120404
  Receipt Date: 20120326
  Transmission Date: 20120825
  Serious: Yes (Congenital Anomaly, Other)
  Sender: FDA-Public Use
  Company Number: DE-ASTRAZENECA-2012SE20009

PATIENT
  Age: 0 Year
  Sex: Female
  Weight: 3.4 kg

DRUGS (2)
  1. VINALAC IMMUNITUM [Concomitant]
     Indication: MATERNAL THERAPY TO ENHANCE FOETAL LUNG MATURITY
     Route: 064
  2. SEROQUEL [Suspect]
     Indication: SCHIZOPHRENIA
     Dosage: 600 MG [MG/D]
     Route: 064
     Dates: start: 20090827, end: 20100531

REACTIONS (1)
  - PYLORIC STENOSIS [None]
